FAERS Safety Report 4705099-0 (Version None)
Quarter: 2005Q3

REPORT INFORMATION
  Report Type: 
  Country: None (occurrence: None)
  Receive Date: 20050701
  Receipt Date: 20050621
  Transmission Date: 20060218
  Serious: Yes (Hospitalization)
  Sender: FDA-Public Use
  Company Number: FR-JNJFOC-20050605994

PATIENT
  Age: 47 Year
  Sex: Male

DRUGS (11)
  1. RISPERDAL CONSTA [Suspect]
     Route: 030
     Dates: start: 20050401, end: 20050601
  2. VALPROIC ACID [Concomitant]
  3. VALPROIC ACID [Concomitant]
  4. ANAFRANIL [Concomitant]
  5. SKENAN [Concomitant]
     Indication: PAIN
  6. BECLOMETHASONE DIPROPIONATE [Concomitant]
     Route: 055
  7. ZOLPIDEM [Concomitant]
  8. LYSANXIA [Concomitant]
  9. NOCTRAN [Concomitant]
  10. NOCTRAN [Concomitant]
  11. NOCTRAN [Concomitant]

REACTIONS (2)
  - CARDIAC DISORDER [None]
  - EUPHORIC MOOD [None]
